FAERS Safety Report 23063274 (Version 1)
Quarter: 2023Q4

REPORT INFORMATION
  Report Type: Report from Study
  Country: CR (occurrence: CR)
  Receive Date: 20231013
  Receipt Date: 20231013
  Transmission Date: 20240110
  Serious: Yes (Hospitalization)
  Sender: FDA-Public Use
  Company Number: CR-002147023-NVSC2023CR219135

PATIENT
  Age: 65 Year
  Sex: Female

DRUGS (1)
  1. EXFORGE HCT [Suspect]
     Active Substance: AMLODIPINE BESYLATE\HYDROCHLOROTHIAZIDE\VALSARTAN
     Indication: Hypertension
     Dosage: 10/320/25 MG
     Route: 048

REACTIONS (2)
  - Arthropod sting [Unknown]
  - Hemihypoaesthesia [Unknown]

NARRATIVE: CASE EVENT DATE: 20231005
